FAERS Safety Report 17800956 (Version 6)
Quarter: 2022Q2

REPORT INFORMATION
  Report Type: Spontaneous
  Country: US (occurrence: US)
  Receive Date: 20200518
  Receipt Date: 20220617
  Transmission Date: 20220721
  Serious: Yes (Hospitalization)
  Sender: FDA-Public Use
  Company Number: US-BIOGEN-2020BI00869803

PATIENT
  Age: 64 Year
  Sex: Female
  Weight: 56.750 kg

DRUGS (17)
  1. TECFIDERA [Suspect]
     Active Substance: DIMETHYL FUMARATE
     Indication: Multiple sclerosis
     Dosage: STARTING DOSE
     Route: 048
     Dates: start: 20200406
  2. TECFIDERA [Suspect]
     Active Substance: DIMETHYL FUMARATE
     Route: 065
     Dates: start: 2020
  3. TECFIDERA [Suspect]
     Active Substance: DIMETHYL FUMARATE
     Route: 065
  4. TECFIDERA [Suspect]
     Active Substance: DIMETHYL FUMARATE
     Dosage: STARTING DOSE
     Route: 048
  5. TECFIDERA [Suspect]
     Active Substance: DIMETHYL FUMARATE
     Route: 065
     Dates: start: 20190624, end: 20190710
  6. TECFIDERA [Suspect]
     Active Substance: DIMETHYL FUMARATE
     Route: 065
     Dates: start: 201908
  7. TECFIDERA [Suspect]
     Active Substance: DIMETHYL FUMARATE
     Dosage: STARTING DOSE
     Route: 065
     Dates: start: 20190624, end: 20190710
  8. TECFIDERA [Suspect]
     Active Substance: DIMETHYL FUMARATE
     Dosage: STARTING DOSE
     Route: 048
     Dates: start: 20190805
  9. TECFIDERA [Suspect]
     Active Substance: DIMETHYL FUMARATE
     Route: 048
     Dates: start: 20190624, end: 20190710
  10. TECFIDERA [Suspect]
     Active Substance: DIMETHYL FUMARATE
     Route: 048
     Dates: start: 20190815
  11. TECFIDERA [Suspect]
     Active Substance: DIMETHYL FUMARATE
     Route: 065
  12. TECFIDERA [Suspect]
     Active Substance: DIMETHYL FUMARATE
     Route: 065
     Dates: start: 20190815
  13. osteo BI flex [Concomitant]
     Indication: Product used for unknown indication
     Route: 065
  14. ALEVE [Concomitant]
     Active Substance: NAPROXEN SODIUM
     Indication: Product used for unknown indication
     Route: 065
  15. neuro-ps [Concomitant]
     Indication: Product used for unknown indication
     Route: 065
  16. VITAMIN B COMPLEX [Concomitant]
     Active Substance: CYANOCOBALAMIN\DEXPANTHENOL\NIACINAMIDE\PYRIDOXINE HYDROCHLORIDE\RIBOFLAVIN 5^-PHOSPHATE SODIUM\THIA
     Indication: Product used for unknown indication
     Route: 065
  17. TRAZODONE HCL [Concomitant]
     Active Substance: TRAZODONE HYDROCHLORIDE
     Indication: Product used for unknown indication
     Route: 065

REACTIONS (19)
  - Dehydration [Recovered/Resolved]
  - Urinary tract infection [Recovered/Resolved]
  - Urosepsis [Recovered/Resolved]
  - Loss of consciousness [Recovered/Resolved]
  - Encephalopathy [Recovered/Resolved]
  - Fall [Recovered/Resolved]
  - Asthenia [Unknown]
  - Coma [Recovered/Resolved]
  - Parosmia [Unknown]
  - Hallucination [Unknown]
  - Chromaturia [Not Recovered/Not Resolved]
  - Nightmare [Unknown]
  - Decubitus ulcer [Not Recovered/Not Resolved]
  - Mobility decreased [Unknown]
  - Confusional state [Unknown]
  - Drug intolerance [Unknown]
  - Fatigue [Unknown]
  - Flushing [Unknown]
  - Nausea [Unknown]

NARRATIVE: CASE EVENT DATE: 20200301
